FAERS Safety Report 7387803-9 (Version None)
Quarter: 2011Q1

REPORT INFORMATION
  Report Type: 
  Country: None (occurrence: None)
  Receive Date: 20110331
  Receipt Date: 20110323
  Transmission Date: 20110831
  Serious: Yes (Hospitalization)
  Sender: FDA-Public Use
  Company Number: US-GILEAD-2011-0037935

PATIENT
  Sex: Female

DRUGS (1)
  1. LETAIRIS [Suspect]
     Indication: PRODUCT USED FOR UNKNOWN INDICATION
     Route: 048
     Dates: start: 20101228

REACTIONS (7)
  - DRY THROAT [None]
  - DIZZINESS [None]
  - SURGERY [None]
  - DYSPNOEA [None]
  - HEADACHE [None]
  - FATIGUE [None]
  - NAUSEA [None]
